FAERS Safety Report 9204144 (Version 1)
Quarter: 2013Q2

REPORT INFORMATION
  Report Type: Spontaneous
  Country: US (occurrence: None)
  Receive Date: 20130401
  Receipt Date: 20130401
  Transmission Date: 20140414
  Serious: Yes (Death)
  Sender: FDA-Public Use
  Company Number: None

PATIENT
  Age: 64 Year
  Sex: Male

DRUGS (1)
  1. ZELBORAF 240 MG, GENENGTECH [Suspect]
     Indication: MALIGNANT MELANOMA
     Route: 048
     Dates: start: 201211, end: 201303

REACTIONS (2)
  - Metastases to central nervous system [None]
  - Metastases to liver [None]
